FAERS Safety Report 8803436 (Version 2)
Quarter: 2013Q2

REPORT INFORMATION
  Report Type: Report from Study
  Country: CH (occurrence: CH)
  Receive Date: 20120924
  Receipt Date: 20130403
  Transmission Date: 20140414
  Serious: Yes (Death, Other)
  Sender: FDA-Public Use
  Company Number: CH-GENZYME-CLOF-1002296

PATIENT
  Age: 63 Year
  Sex: Male
  Weight: 106 kg

DRUGS (7)
  1. EVOLTRA [Suspect]
     Indication: ACUTE MYELOID LEUKAEMIA
     Dosage: 21 MG, UNK
     Route: 042
     Dates: start: 20120823, end: 20120828
  2. CYTARABINE [Suspect]
     Indication: ACUTE MYELOID LEUKAEMIA
     Dosage: 12 X 2100 MG, UNK
     Route: 042
     Dates: start: 20120823
  3. AMSACRINE [Suspect]
     Indication: ACUTE MYELOID LEUKAEMIA
     Dosage: 250 MG, UNK
     Route: 042
     Dates: start: 20120826
  4. VORICONAZOLE [Concomitant]
     Indication: FUNGAL INFECTION
     Dosage: 300 MG, UNK
     Route: 048
     Dates: start: 20120904
  5. MEROPENEM [Concomitant]
     Indication: NEUTROPENIC INFECTION
     Dosage: 3 G, UNK
     Route: 042
     Dates: start: 20120907
  6. ZOVIRAX [Concomitant]
     Indication: MUCOSAL INFLAMMATION
     Dosage: 1500 MG, UNK
     Route: 042
     Dates: start: 20120907
  7. ZOVIRAX [Concomitant]
     Indication: HERPES SIMPLEX

REACTIONS (4)
  - Multi-organ failure [Fatal]
  - Bone marrow failure [Fatal]
  - Septic shock [Fatal]
  - Enterococcal sepsis [Fatal]
